FAERS Safety Report 18696991 (Version 2)
Quarter: 2021Q1

REPORT INFORMATION
  Report Type: Spontaneous
  Country: US (occurrence: US)
  Receive Date: 20210104
  Receipt Date: 20210202
  Transmission Date: 20210419
  Serious: No
  Sender: FDA-Public Use
  Company Number: US-009507513-2012USA011485

PATIENT
  Age: 78 Year
  Sex: Female
  Weight: 62.6 kg

DRUGS (19)
  1. PEPSIN [Concomitant]
     Active Substance: PEPSIN
     Dosage: UNK
  2. SINEMET [Suspect]
     Active Substance: CARBIDOPA\LEVODOPA
     Indication: PARKINSON^S DISEASE
     Dosage: 25/100 MG, HALF A TABLET, 1X/DAY AT 9PM
  3. CYANOCOBALAMIN. [Concomitant]
     Active Substance: CYANOCOBALAMIN
     Dosage: 1 DOSAGE FORM, VITAMIN B?12, AM
  4. MIRAPEX [Concomitant]
     Active Substance: PRAMIPEXOLE DIHYDROCHLORIDE
     Dosage: ONE AT 6 AM, 9 AM, 12 NOON, 3 PM, 6 PM AND 9 PM
  5. ZESTRIL [Concomitant]
     Active Substance: LISINOPRIL
     Dosage: 1 DOSAGE FORM, PM
     Route: 048
  6. COLACE [Concomitant]
     Active Substance: DOCUSATE SODIUM
     Dosage: UNK, CAPSULE
  7. MIRALAX [Concomitant]
     Active Substance: POLYETHYLENE GLYCOL 3350
     Dosage: UNK
  8. OMEPRAZOLE. [Concomitant]
     Active Substance: OMEPRAZOLE
     Dosage: 1 DOSAGE FORM, PM
  9. SENOKOT [Concomitant]
     Active Substance: SENNOSIDES
     Dosage: 1 DOSAGE FORM, AT BEDTIME
  10. ASCORBIC ACID. [Concomitant]
     Active Substance: ASCORBIC ACID
     Dosage: 1 DOSAGE FORM, VITAMN C, AM
  11. PEPCID [Concomitant]
     Active Substance: FAMOTIDINE
     Dosage: 1 DOSAGE FORM, PM
     Route: 048
  12. ASPIRIN. [Concomitant]
     Active Substance: ASPIRIN
     Dosage: 1 DOSAGE FORM, AM
  13. GLUCOPHAGE [Concomitant]
     Active Substance: METFORMIN HYDROCHLORIDE
     Dosage: 1 DOSAGE FORM, AM
  14. PRAMIPEXOLE. [Suspect]
     Active Substance: PRAMIPEXOLE
     Indication: PARKINSON^S DISEASE
     Dosage: 0.25 MG AT 6AM, GAM, 12PM, 3PM, 6PM AND 9PM
  15. CLARITIN [Concomitant]
     Active Substance: LORATADINE
     Dosage: 1 DOSAGE FORM, PM
  16. VITAMIN E [Concomitant]
     Active Substance: .ALPHA.-TOCOPHEROL
     Dosage: 1 DOSAGE FORM, AM
  17. SINEMET CR [Suspect]
     Active Substance: CARBIDOPA\LEVODOPA
     Dosage: 2 DOSAGE FORM, 1X/DAY AT BEDTIME
  18. RYTARY [Suspect]
     Active Substance: CARBIDOPA\LEVODOPA
     Indication: PARKINSON^S DISEASE
     Dosage: 48.75/195 MG; 5X/DAY AT 6AM, 9AM, 12PM, 3PM AND 6PM
  19. ZOCOR [Concomitant]
     Active Substance: SIMVASTATIN
     Dosage: 1 DOSAGE FORM, AT BEDTIME

REACTIONS (1)
  - Drug ineffective [Recovering/Resolving]

NARRATIVE: CASE EVENT DATE: 20201021
